FAERS Safety Report 7904882-8 (Version None)
Quarter: 2011Q4

REPORT INFORMATION
  Report Type: 
  Country: None (occurrence: None)
  Receive Date: 20111109
  Receipt Date: 20111031
  Transmission Date: 20120403
  Serious: Yes (Other)
  Sender: FDA-Public Use
  Company Number: PHHY2011CA11428

PATIENT
  Sex: Female

DRUGS (3)
  1. SANDOSTATIN LAR [Suspect]
     Indication: THYROID CANCER
     Dosage: 20 MG,QMO
     Route: 030
     Dates: start: 20040713, end: 20070306
  2. SANDOSTATIN LAR [Suspect]
     Dosage: 30 MG, QW3
     Route: 030
  3. SANDOSTATIN LAR [Suspect]
     Route: 030
     Dates: start: 20110209

REACTIONS (16)
  - RECTAL HAEMORRHAGE [None]
  - LYMPH NODE PAIN [None]
  - NERVOUSNESS [None]
  - INJECTION SITE ERYTHEMA [None]
  - INJECTION SITE MASS [None]
  - INJECTION SITE PAIN [None]
  - PAIN [None]
  - BLOOD PRESSURE DECREASED [None]
  - DIARRHOEA [None]
  - ABDOMINAL DISTENSION [None]
  - COUGH [None]
  - ASTHENIA [None]
  - ALOPECIA [None]
  - WEIGHT DECREASED [None]
  - ANORECTAL DISCOMFORT [None]
  - POLLAKIURIA [None]
